FAERS Safety Report 26185921 (Version 1)
Quarter: 2025Q4

REPORT INFORMATION
  Report Type: Spontaneous
  Country: US (occurrence: US)
  Receive Date: 20251222
  Receipt Date: 20251222
  Transmission Date: 20260117
  Serious: No
  Sender: UROGEN PHARMA
  Company Number: US-UROGEN PHARMA LTD.-2025-UGN-000217

PATIENT

DRUGS (2)
  1. ZUSDURI [Suspect]
     Active Substance: MITOMYCIN
     Indication: Product used for unknown indication
     Dosage: 56 MILLILITER, ONCE A WEEK (INSTILLATION)
     Dates: start: 20251028, end: 20251028
  2. ZUSDURI [Suspect]
     Active Substance: MITOMYCIN
     Dosage: 56 MILLILITER, ONCE A WEEK (INSTILLATION)
     Dates: start: 20251104, end: 20251104

REACTIONS (3)
  - Catheter site haemorrhage [Unknown]
  - Complication associated with device [Recovered/Resolved]
  - Catheter site discomfort [Unknown]

NARRATIVE: CASE EVENT DATE: 20251028
